FAERS Safety Report 19861792 (Version 1)
Quarter: 2021Q3

REPORT INFORMATION
  Report Type: Report from Study
  Country: US (occurrence: US)
  Receive Date: 20210921
  Receipt Date: 20210921
  Transmission Date: 20211014
  Serious: Yes (Other)
  Sender: FDA-Public Use
  Company Number: US-SHIRE-US201834819

PATIENT
  Sex: Female

DRUGS (1)
  1. HUMAN IMMUNOGLOBULIN; HYALURONIDASE [Suspect]
     Active Substance: HUMAN IMMUNOGLOBULIN G\HYALURONIDASE RECOMBINANT HUMAN
     Indication: PRIMARY IMMUNODEFICIENCY SYNDROME
     Dosage: 45 GRAM, MONTHLY
     Route: 065

REACTIONS (5)
  - Inappropriate schedule of product administration [Unknown]
  - Interstitial lung disease [Unknown]
  - COVID-19 [Recovered/Resolved]
  - Inability to afford medication [Unknown]
  - Pneumonia [Recovered/Resolved]
